FAERS Safety Report 6394561-3 (Version None)
Quarter: 2009Q4

REPORT INFORMATION
  Report Type: 
  Country: None (occurrence: None)
  Receive Date: 20091009
  Receipt Date: 20090929
  Transmission Date: 20100525
  Serious: Yes (Hospitalization)
  Sender: FDA-Public Use
  Company Number: BR-ABBOTT-08P-020-0491824-00

PATIENT
  Sex: Female

DRUGS (3)
  1. HUMIRA [Suspect]
     Indication: RHEUMATOID ARTHRITIS
     Route: 058
     Dates: start: 20080401, end: 20080601
  2. HUMIRA [Suspect]
     Route: 058
     Dates: end: 20090801
  3. METHOTREXATE [Concomitant]
     Indication: RHEUMATOID ARTHRITIS

REACTIONS (4)
  - ACUTE STRESS DISORDER [None]
  - AFFECTIVE DISORDER [None]
  - INJECTION SITE REACTION [None]
  - URINARY TRACT DISORDER [None]
